FAERS Safety Report 20679653 (Version 2)
Quarter: 2022Q2

REPORT INFORMATION
  Report Type: Report from Study
  Country: US (occurrence: US)
  Receive Date: 20220406
  Receipt Date: 20220407
  Transmission Date: 20220721
  Serious: Yes (Death)
  Sender: FDA-Public Use
  Company Number: US-JNJFOC-20220401097

PATIENT
  Age: 62 Year
  Sex: Female
  Weight: 65.830 kg

DRUGS (4)
  1. SPRAVATO [Suspect]
     Active Substance: ESKETAMINE
     Indication: Depression
     Dosage: 56MG, 7 TOTAL DOSES
     Dates: start: 20210818, end: 20210910
  2. SPRAVATO [Suspect]
     Active Substance: ESKETAMINE
     Dosage: 84MG, 11 TOTAL DOSES
     Dates: start: 20210916, end: 20220103
  3. SPRAVATO [Suspect]
     Active Substance: ESKETAMINE
     Dosage: 84MG, MOST RECENT
     Dates: start: 20220110, end: 20220110
  4. VENLAFAXINE [Concomitant]
     Active Substance: VENLAFAXINE HYDROCHLORIDE

REACTIONS (1)
  - Completed suicide [Fatal]

NARRATIVE: CASE EVENT DATE: 20220314
